FAERS Safety Report 9901211 (Version 2)
Quarter: 2014Q1

REPORT INFORMATION
  Report Type: Spontaneous
  Country: JP (occurrence: JP)
  Receive Date: 20140217
  Receipt Date: 20140217
  Transmission Date: 20141002
  Serious: Yes (Life-Threatening, Other)
  Sender: FDA-Public Use
  Company Number: JP-ASTELLAS-2013JP014244

PATIENT
  Age: 67 Year
  Sex: Male
  Weight: 60 kg

DRUGS (24)
  1. PROGRAF [Suspect]
     Indication: COLITIS ULCERATIVE
     Dosage: 4 MG, BID
     Route: 048
     Dates: start: 20121223, end: 20130128
  2. PROGRAF [Suspect]
     Dosage: 3 MG, BID
     Route: 048
     Dates: start: 20121218, end: 20121222
  3. PREDONINE /00016201/ [Suspect]
     Indication: COLITIS ULCERATIVE
     Dosage: 30 MG, BID
     Route: 042
     Dates: start: 20121206, end: 20121217
  4. PREDONINE /00016201/ [Suspect]
     Dosage: 25 MG, BID
     Route: 042
     Dates: start: 20121218, end: 20121222
  5. PREDONINE /00016201/ [Suspect]
     Dosage: 20 MG, BID
     Route: 042
     Dates: start: 20121223, end: 20121227
  6. PREDONINE /00016201/ [Suspect]
     Indication: COLITIS ULCERATIVE
     Dosage: 15 MG, BID
     Route: 048
     Dates: start: 20121228, end: 20130101
  7. PREDONINE /00016201/ [Suspect]
     Dosage: 10 MG, BID
     Route: 048
     Dates: start: 20130102, end: 20130106
  8. PREDONINE /00016201/ [Suspect]
     Dosage: 10 MG, UID/QD
     Route: 048
     Dates: start: 20130107, end: 20130111
  9. PREDONINE /00016201/ [Suspect]
     Dosage: 5 MG, UID/QD
     Route: 048
     Dates: start: 20130112, end: 20130117
  10. VFEND [Suspect]
     Dosage: UNK
     Route: 065
     Dates: start: 20130124, end: 20130131
  11. VFEND [Suspect]
     Dosage: 400 MG, UNKNOWN/D
     Route: 065
     Dates: start: 2013, end: 2013
  12. VFEND [Suspect]
     Dosage: 400 MG, UNKNOWN/D
     Route: 065
     Dates: start: 2013, end: 20130327
  13. ASACOL [Concomitant]
     Indication: COLITIS ULCERATIVE
     Dosage: 1200 MG, TID
     Route: 048
     Dates: start: 2012
  14. ASACOL [Concomitant]
     Indication: COLITIS ULCERATIVE
     Dosage: UNK
     Route: 050
     Dates: start: 2013
  15. HERBESSER R [Concomitant]
     Indication: ANGINA PECTORIS
     Dosage: 100 MG, UID/QD
     Route: 048
     Dates: start: 2003
  16. LIPITOR [Concomitant]
     Indication: HYPERCHOLESTEROLAEMIA
     Dosage: 20 MG, UID/QD
     Route: 048
     Dates: start: 2003
  17. METGLUCO [Concomitant]
     Indication: TYPE 2 DIABETES MELLITUS
     Dosage: 250 MG, TID
     Route: 048
     Dates: start: 2008
  18. EQUA [Concomitant]
     Indication: TYPE 2 DIABETES MELLITUS
     Dosage: 50 MG, BID
     Route: 048
     Dates: start: 2012
  19. BAYASPIRIN [Concomitant]
     Indication: ANGINA PECTORIS
     Dosage: 100 MG, UID/QD
     Route: 048
     Dates: start: 2003
  20. OLMETEC [Concomitant]
     Indication: HYPERTENSION
     Dosage: 10 MG, UID/QD
     Route: 048
     Dates: start: 2012
  21. BAKTAR [Concomitant]
     Indication: COLITIS ULCERATIVE
     Dosage: 1 DF, UID/QD
     Route: 048
     Dates: start: 20121217, end: 20130124
  22. DENOSINE                           /00784201/ [Concomitant]
     Indication: COLITIS ULCERATIVE
     Dosage: 125 MG, BID
     Route: 065
     Dates: start: 20130109, end: 20130124
  23. FUNGUARD [Concomitant]
     Dosage: UNK
     Route: 065
     Dates: end: 20130123
  24. FUNGUARD [Concomitant]
     Dosage: 300 MG, UNKNOWN/D
     Route: 065
     Dates: start: 2013, end: 2013

REACTIONS (2)
  - Bronchopulmonary aspergillosis [Recovered/Resolved]
  - Liver disorder [Unknown]
